FAERS Safety Report 4373657-1 (Version None)
Quarter: 2004Q1

REPORT INFORMATION
  Report Type: 
  Country: None (occurrence: None)
  Receive Date: 20040305
  Receipt Date: 20031126
  Transmission Date: 20041129
  Serious: Yes (Other)
  Sender: FDA-Public Use
  Company Number: 2003UW15694

PATIENT
  Age: 68 Year
  Sex: Female
  Weight: 89.3586 kg

DRUGS (4)
  1. CRESTOR [Suspect]
     Indication: BLOOD CHOLESTEROL INCREASED
  2. SYNTHROID [Concomitant]
  3. ZOLOFT [Concomitant]
  4. VITAMIN E [Concomitant]

REACTIONS (1)
  - PAIN IN EXTREMITY [None]
